FAERS Safety Report 8930419 (Version 1)
Quarter: 2012Q4

REPORT INFORMATION
  Report Type: 
  Country: US (occurrence: US)
  Receive Date: 20121128
  Receipt Date: 20121128
  Transmission Date: 20130627
  Serious: Yes (Other)
  Sender: FDA-Public Use
  Company Number: US-BAYER-2012-121878

PATIENT
  Age: 22 Year
  Sex: Female

DRUGS (1)
  1. MIRENA [Suspect]
     Indication: CONTRACEPTION
     Dosage: 20 mcg/24hr, CONT
     Route: 015
     Dates: start: 201107

REACTIONS (7)
  - Genital haemorrhage [None]
  - Feeling abnormal [None]
  - Abdominal pain upper [None]
  - Discomfort [None]
  - Dyspareunia [None]
  - Malaise [None]
  - Nausea [None]
